FAERS Safety Report 19887854 (Version 1)
Quarter: 2021Q3

REPORT INFORMATION
  Report Type: Spontaneous
  Country: US (occurrence: US)
  Receive Date: 20210924
  Receipt Date: 20210924
  Transmission Date: 20211014
  Serious: Yes (Death)
  Sender: FDA-Public Use
  Company Number: None

PATIENT
  Age: 57 Year
  Sex: Female
  Weight: 43.2 kg

DRUGS (2)
  1. ENTECAVIR 0.5 MG [Suspect]
     Active Substance: ENTECAVIR
     Indication: HEPATITIS B REACTIVATION
     Route: 048
     Dates: start: 202107
  2. ENTECAVIR 0.5 MG [Suspect]
     Active Substance: ENTECAVIR
     Indication: ANTIVIRAL PROPHYLAXIS
     Route: 048
     Dates: start: 202107

REACTIONS (3)
  - Herpes simplex [None]
  - Febrile neutropenia [None]
  - Acute lymphocytic leukaemia recurrent [None]

NARRATIVE: CASE EVENT DATE: 20210920
